FAERS Safety Report 20427995 (Version 1)
Quarter: 2022Q1

REPORT INFORMATION
  Report Type: Spontaneous
  Country: GB (occurrence: GB)
  Receive Date: 20220204
  Receipt Date: 20220204
  Transmission Date: 20220423
  Serious: Yes (Other)
  Sender: FDA-Public Use
  Company Number: GB-SUN PHARMACEUTICAL INDUSTRIES LTD-2021RR-323342

PATIENT
  Age: 43 Year
  Sex: Male

DRUGS (1)
  1. CIPROFLOXACIN [Suspect]
     Active Substance: CIPROFLOXACIN
     Indication: Epididymitis
     Dosage: 1000 MILLIGRAM, DAILY, 500MG TWICE DAILY
     Route: 048
     Dates: start: 20211206, end: 20211207

REACTIONS (2)
  - Neuropathy peripheral [Not Recovered/Not Resolved]
  - Off label use [Unknown]

NARRATIVE: CASE EVENT DATE: 20211207
